FAERS Safety Report 4333452-6 (Version None)
Quarter: 2004Q1

REPORT INFORMATION
  Report Type: 
  Country: None (occurrence: None)
  Receive Date: 20040329
  Receipt Date: 20040113
  Transmission Date: 20041129
  Serious: No
  Sender: FDA-Public Use
  Company Number: 04P-163-0246990-00

PATIENT
  Age: 49 Year
  Sex: Female
  Weight: 63.05 kg

DRUGS (5)
  1. HUMIRA [Suspect]
     Indication: RHEUMATOID ARTHRITIS
     Dosage: 40 MG, 1 IN 2 WK, SUBCUTANEOUS
     Route: 058
     Dates: start: 20030501
  2. PREDNISONE [Concomitant]
  3. ACETAMINOPHEN W/ CODEINE [Concomitant]
  4. ATENOLOL [Concomitant]
  5. ESTROVEN [Concomitant]

REACTIONS (1)
  - URTICARIA [None]
